FAERS Safety Report 7451609-2 (Version None)
Quarter: 2011Q2

REPORT INFORMATION
  Report Type: 
  Country: None (occurrence: None)
  Receive Date: 20110502
  Receipt Date: 20101122
  Transmission Date: 20111010
  Serious: Yes (Hospitalization)
  Sender: FDA-Public Use
  Company Number: US-ASTRAZENECA-2010SE03550

PATIENT
  Age: 59 Year
  Sex: Female
  Weight: 59 kg

DRUGS (3)
  1. RITANA [Concomitant]
  2. CRESTOR [Concomitant]
  3. NEXIUM [Suspect]
     Dosage: DAILY
     Route: 048
     Dates: start: 20070101

REACTIONS (3)
  - GASTROOESOPHAGEAL REFLUX DISEASE [None]
  - DYSPEPSIA [None]
  - DRUG INEFFECTIVE [None]
